FAERS Safety Report 23159129 (Version 2)
Quarter: 2023Q4

REPORT INFORMATION
  Report Type: Report from Study
  Country: US (occurrence: US)
  Receive Date: 20231108
  Receipt Date: 20231127
  Transmission Date: 20240110
  Serious: Yes (Hospitalization, Other)
  Sender: FDA-Public Use
  Company Number: US-SUN PHARMACEUTICAL INDUSTRIES LTD-2023R1-417449

PATIENT
  Age: 38 Year
  Sex: Female
  Weight: 69.4 kg

DRUGS (3)
  1. DOXORUBICIN HYDROCHLORIDE [Suspect]
     Active Substance: DOXORUBICIN HYDROCHLORIDE
     Indication: Breast cancer
     Dosage: UNK (700 MG, Q2W)
     Route: 042
     Dates: start: 20230626, end: 20230918
  2. AVELUMAB [Concomitant]
     Active Substance: AVELUMAB
     Indication: Breast cancer
     Dosage: UNK (50 MG, Q4W)
     Route: 042
     Dates: start: 20230612, end: 20230905
  3. KEPPRA [Concomitant]
     Active Substance: LEVETIRACETAM
     Indication: Seizure prophylaxis
     Dosage: 50 MILLIGRAM, BID
     Route: 065
     Dates: start: 20231001

REACTIONS (1)
  - Muscular weakness [Recovered/Resolved with Sequelae]

NARRATIVE: CASE EVENT DATE: 20230929
